FAERS Safety Report 6818290-4 (Version None)
Quarter: 2010Q3

REPORT INFORMATION
  Report Type: 
  Country: None (occurrence: None)
  Receive Date: 20100706
  Receipt Date: 20070726
  Transmission Date: 20110219
  Serious: No
  Sender: FDA-Public Use
  Company Number: US-PFIZER INC-2007062022

PATIENT
  Sex: Female

DRUGS (4)
  1. ZITHROMAX [Suspect]
     Dates: start: 20070619, end: 20070624
  2. PREMPHASE 14/14 [Concomitant]
  3. MAXALT [Concomitant]
  4. NASACORT [Concomitant]

REACTIONS (2)
  - AGEUSIA [None]
  - ANOSMIA [None]
